FAERS Safety Report 9995832 (Version 1)
Quarter: 2014Q1

REPORT INFORMATION
  Report Type: Spontaneous
  Country: US (occurrence: None)
  Receive Date: 20140310
  Receipt Date: 20140310
  Transmission Date: 20141002
  Serious: Yes (Disabling)
  Sender: FDA-Public Use
  Company Number: None

PATIENT
  Age: 40 Year
  Sex: Male
  Weight: 176.9 kg

DRUGS (1)
  1. CYMBALTA [Suspect]
     Indication: DEPRESSION
     Dosage: 1 TIME DAILY ONCE DAILY TAKEN BY MOUTH
     Route: 048
     Dates: end: 20140307

REACTIONS (7)
  - Drug withdrawal syndrome [None]
  - Dysphemia [None]
  - Paraesthesia [None]
  - Nausea [None]
  - Anxiety [None]
  - Emotional distress [None]
  - Weight increased [None]
